FAERS Safety Report 4815613-2 (Version None)
Quarter: 2005Q4

REPORT INFORMATION
  Report Type: 
  Country: None (occurrence: None)
  Receive Date: 20051027
  Receipt Date: 20051014
  Transmission Date: 20060501
  Serious: Yes (Hospitalization)
  Sender: FDA-Public Use
  Company Number: PHBS2005AT13298

PATIENT
  Age: 80 Year
  Sex: Male

DRUGS (4)
  1. VISUDYNE [Suspect]
     Indication: MACULAR DEGENERATION
     Dosage: 6 MGM^2 ONCE, IV
     Route: 042
  2. THROMBO ASS [Concomitant]
  3. XALATAN [Concomitant]
  4. VOLON A [Suspect]
     Dosage: 40 MG DAILY

REACTIONS (2)
  - EYE HAEMORRHAGE [None]
  - VISUAL ACUITY REDUCED [None]
